FAERS Safety Report 7466060-9 (Version None)
Quarter: 2011Q2

REPORT INFORMATION
  Report Type: 
  Country: None (occurrence: None)
  Receive Date: 20110509
  Receipt Date: 20100630
  Transmission Date: 20111010
  Serious: Yes (Hospitalization, Other)
  Sender: FDA-Public Use
  Company Number: US-ALEXION-A201000449

PATIENT
  Sex: Female

DRUGS (1)
  1. SOLIRIS [Suspect]
     Dosage: UNK
     Route: 042

REACTIONS (4)
  - SURGERY [None]
  - ESCHERICHIA INFECTION [None]
  - BIOPSY CERVIX [None]
  - ASTHENIA [None]
